FAERS Safety Report 24420759 (Version 2)
Quarter: 2024Q4

REPORT INFORMATION
  Report Type: Report from Study
  Country: US (occurrence: US)
  Receive Date: 20241010
  Receipt Date: 20241018
  Transmission Date: 20250114
  Serious: No
  Sender: ROCHE
  Company Number: US-ROCHE-3564579

PATIENT
  Age: 43 Year
  Sex: Female

DRUGS (2)
  1. ACTIVASE [Suspect]
     Active Substance: ALTEPLASE
     Indication: Cerebral infarction
     Route: 065
     Dates: start: 20230927
  2. ACTIVASE [Suspect]
     Active Substance: ALTEPLASE
     Indication: Facial paresis

REACTIONS (2)
  - Off label use [Unknown]
  - No adverse event [Unknown]
